FAERS Safety Report 11292443 (Version 1)
Quarter: 2015Q3

REPORT INFORMATION
  Report Type: Spontaneous
  Country: JP (occurrence: JP)
  Receive Date: 20150722
  Receipt Date: 20150722
  Transmission Date: 20151125
  Serious: Yes (Other)
  Sender: FDA-Public Use
  Company Number: JP-PFIZER INC-2015213080

PATIENT
  Age: 95 Year
  Sex: Female
  Weight: 42 kg

DRUGS (14)
  1. ALLOPURINOL. [Concomitant]
     Active Substance: ALLOPURINOL
     Dosage: 100 MG, 1X/DAY
     Route: 048
  2. DAIMEDIN MULTI [Concomitant]
     Dosage: 1 VIAL 1X/DAY
     Route: 042
     Dates: start: 20150609
  3. TAKEPRON OD [Concomitant]
     Active Substance: LANSOPRAZOLE
     Dosage: 15 MG, 1X/DAY
     Route: 048
  4. ZYVOX [Suspect]
     Active Substance: LINEZOLID
     Dosage: 600 MG, 2X/DAY
     Route: 042
     Dates: start: 20150606
  5. ALDACTONE A [Concomitant]
     Active Substance: SPIRONOLACTONE
     Dosage: 25 MG, 1X/DAY
     Route: 048
  6. ELEMENMIC [Concomitant]
     Active Substance: CUPRIC SULFATE\FERRIC CHLORIDE\MANGANESE CHLORIDE\POTASSIUM IODIDE\ZINC SULFATE
     Dosage: 1 AMPULE, 1X/DAY
     Route: 042
     Dates: start: 20150609
  7. UNASYN S [Concomitant]
     Active Substance: AMPICILLIN SODIUM\SULBACTAM SODIUM
     Dosage: 3 G, 3X/DAY
     Route: 042
     Dates: start: 20150607, end: 20150615
  8. MAINTATE [Concomitant]
     Active Substance: BISOPROLOL FUMARATE
     Dosage: 0.625 MG, 1X/DAY
     Route: 048
  9. DALACIN S [Concomitant]
     Dosage: 600 MG, 2X/DAY
     Route: 042
     Dates: start: 20150607, end: 20150615
  10. KENKETU GLOVENIN-I [Concomitant]
     Active Substance: HUMAN IMMUNOGLOBULIN G
     Dosage: 3 G, 1X/DAY
     Route: 042
     Dates: start: 20150606, end: 20150608
  11. BLOPRESS [Concomitant]
     Active Substance: CANDESARTAN CILEXETIL
     Dosage: 4 MG, 1X/DAY
     Route: 048
     Dates: end: 20150619
  12. AMINOTRIPA [Concomitant]
     Dosage: 900 ML, 1X/DAY
     Route: 042
     Dates: start: 20150609
  13. BLOPRESS [Concomitant]
     Active Substance: CANDESARTAN CILEXETIL
     Dosage: 8 MG, 1X/DAY
     Route: 048
     Dates: start: 20150620
  14. HEPARIN SODIUM. [Concomitant]
     Active Substance: HEPARIN SODIUM
     Dosage: 10000 IU, 1X/DAY
     Route: 042
     Dates: start: 20150609, end: 20150616

REACTIONS (1)
  - Urinary retention [Recovered/Resolved]

NARRATIVE: CASE EVENT DATE: 20150614
